FAERS Safety Report 21518383 (Version 1)
Quarter: 2022Q4

REPORT INFORMATION
  Report Type: Spontaneous
  Country: CA (occurrence: None)
  Receive Date: 20221028
  Receipt Date: 20221028
  Transmission Date: 20230112
  Serious: Yes (Hospitalization, Other)
  Sender: FDA-Public Use
  Company Number: 2022A354828

PATIENT
  Sex: Female

DRUGS (1)
  1. SYMBICORT [Suspect]
     Active Substance: BUDESONIDE\FORMOTEROL FUMARATE DIHYDRATE
     Dosage: UNKNOWN
     Route: 055

REACTIONS (6)
  - Pleural effusion [Unknown]
  - Myocardial infarction [Unknown]
  - Dyspnoea [Unknown]
  - Product use issue [Unknown]
  - Inability to afford medication [Unknown]
  - Drug ineffective [Unknown]
